FAERS Safety Report 9809383 (Version 1)
Quarter: 2014Q1

REPORT INFORMATION
  Report Type: Spontaneous
  Country: US (occurrence: US)
  Receive Date: 20140110
  Receipt Date: 20140110
  Transmission Date: 20141002
  Serious: No
  Sender: FDA-Public Use
  Company Number: US-MALLINCKRODT-T201305008

PATIENT
  Age: 51 Year
  Sex: Female

DRUGS (1)
  1. OPTIRAY [Suspect]
     Indication: IMAGING PROCEDURE
     Dosage: LESS THAN 5 ML
     Route: 065
     Dates: start: 20131127, end: 20131127

REACTIONS (2)
  - Wrong drug administered [Unknown]
  - Incorrect route of drug administration [Unknown]
